FAERS Safety Report 17187332 (Version 1)
Quarter: 2019Q4

REPORT INFORMATION
  Report Type: Report from Study
  Country: FR (occurrence: FR)
  Receive Date: 20191220
  Receipt Date: 20191220
  Transmission Date: 20200122
  Serious: Yes (Other)
  Sender: FDA-Public Use
  Company Number: FR-JAZZ-2019-FR-016399

PATIENT

DRUGS (2)
  1. XYREM [Suspect]
     Active Substance: SODIUM OXYBATE
     Dosage: 7.5 G, QD
     Route: 048
     Dates: start: 20191118
  2. XYREM [Suspect]
     Active Substance: SODIUM OXYBATE
     Indication: HYPERSOMNIA
     Dosage: 2.25 G, BID
     Route: 048

REACTIONS (9)
  - Vertigo [Unknown]
  - Nausea [Unknown]
  - Somnolence [Unknown]
  - Dizziness [Unknown]
  - Off label use [Unknown]
  - Feeling drunk [Unknown]
  - Dry eye [Unknown]
  - Feeling abnormal [Unknown]
  - Eye irritation [Unknown]

NARRATIVE: CASE EVENT DATE: 201911
